FAERS Safety Report 5420483-8 (Version None)
Quarter: 2007Q3

REPORT INFORMATION
  Report Type: 
  Country: None (occurrence: None)
  Receive Date: 20070821
  Receipt Date: 20070815
  Transmission Date: 20080115
  Serious: Yes (Other)
  Sender: FDA-Public Use
  Company Number: PHFR2007GB01507

PATIENT
  Age: 60 Year
  Sex: Female
  Weight: 60 kg

DRUGS (7)
  1. TEGRETOL [Suspect]
     Indication: EPILEPSY
     Dosage: 600 MG, BID
     Route: 048
     Dates: start: 19900101, end: 20030101
  2. FERROUS SULFATE TAB [Concomitant]
     Indication: ANAEMIA
     Dosage: 200 MG, BID
     Route: 048
  3. QUETIAPINE FUMARATE [Concomitant]
     Indication: HYPOMANIA
     Dosage: 100 MG, BID
     Route: 048
     Dates: start: 20030101, end: 20070101
  4. IBUPROFEN [Concomitant]
     Dosage: 200 MG, BID
     Route: 048
  5. ESOMEPRAZOLE MAGNESIUM [Concomitant]
     Dosage: 40MG/MANE
     Route: 048
  6. FLUOXETINE [Concomitant]
     Indication: DEPRESSION
     Dosage: 20MG/MANE
     Route: 048
     Dates: start: 20010101, end: 20040101
  7. TAMOXIFEN CITRATE [Concomitant]
     Indication: BREAST CANCER
     Dosage: 20MG/MANE
     Route: 048
     Dates: start: 20010101

REACTIONS (6)
  - BIPOLAR DISORDER [None]
  - BREAST CANCER [None]
  - HAEMOGLOBIN DECREASED [None]
  - OSTEOPOROSIS [None]
  - PANCYTOPENIA [None]
  - WHITE BLOOD CELL COUNT DECREASED [None]
